FAERS Safety Report 16053202 (Version 1)
Quarter: 2019Q1

REPORT INFORMATION
  Report Type: Spontaneous
  Country: FR (occurrence: FR)
  Receive Date: 20190308
  Receipt Date: 20190308
  Transmission Date: 20190418
  Serious: Yes (Hospitalization)
  Sender: FDA-Public Use
  Company Number: FR-MYLANLABS-2019M1021046

PATIENT
  Age: 44 Year
  Sex: Male
  Weight: 114 kg

DRUGS (3)
  1. ABILIFY [Suspect]
     Active Substance: ARIPIPRAZOLE
     Indication: BIPOLAR DISORDER
     Dosage: 15 MILLIGRAM, QD
     Route: 005
     Dates: start: 2017
  2. TRAMADOL. [Suspect]
     Active Substance: TRAMADOL
     Indication: TOOTHACHE
     Dosage: 1-0-1 + 50 MG IF NEEDED
     Route: 048
     Dates: start: 20180501, end: 20180531
  3. DEPAMIDE [Suspect]
     Active Substance: VALPROMIDE
     Indication: BIPOLAR DISORDER
     Dosage: 2-0-3
     Route: 048
     Dates: start: 2013

REACTIONS (3)
  - Compulsive shopping [Recovered/Resolved]
  - Decreased appetite [Recovered/Resolved]
  - Affective disorder [Recovered/Resolved]

NARRATIVE: CASE EVENT DATE: 20180501
